FAERS Safety Report 5627730-8 (Version None)
Quarter: 2008Q1

REPORT INFORMATION
  Report Type: 
  Country: None (occurrence: None)
  Receive Date: 20080215
  Receipt Date: 20080211
  Transmission Date: 20080703
  Serious: Yes (Other)
  Sender: FDA-Public Use
  Company Number: FR-AVENTIS-200810506FR

PATIENT
  Age: 79 Year
  Sex: Female

DRUGS (8)
  1. CLAFORAN [Suspect]
     Route: 042
     Dates: start: 20071229, end: 20080102
  2. DEXAMETHASONE [Suspect]
     Route: 042
     Dates: start: 20071229, end: 20080102
  3. VANCOMYCIN HCL [Suspect]
     Route: 042
     Dates: start: 20071229, end: 20080102
  4. HYPNOVEL                           /00634103/ [Suspect]
     Route: 042
     Dates: start: 20071229, end: 20080102
  5. FENTANYL RENAUDIN [Suspect]
     Route: 042
     Dates: start: 20071229, end: 20080102
  6. PERFALGAN [Concomitant]
     Indication: PAIN
     Route: 042
     Dates: start: 20071229
  7. CLAMOXYL                           /00249601/ [Concomitant]
     Route: 042
     Dates: start: 20071229
  8. MOPRAL [Concomitant]
     Indication: PROPHYLAXIS
     Route: 048
     Dates: start: 20071229

REACTIONS (1)
  - PANCREATITIS ACUTE [None]
